FAERS Safety Report 15607273 (Version 1)
Quarter: 2018Q4

REPORT INFORMATION
  Report Type: Spontaneous
  Country: US (occurrence: US)
  Receive Date: 20181112
  Receipt Date: 20181112
  Transmission Date: 20190205
  Serious: Yes (Life-Threatening, Hospitalization, Disabling)
  Sender: FDA-Public Use
  Company Number: None

PATIENT
  Age: 45 Year
  Sex: Male
  Weight: 103.5 kg

DRUGS (3)
  1. LISINOPRIL. [Concomitant]
     Active Substance: LISINOPRIL
  2. VENLAFAXINE [Concomitant]
     Active Substance: VENLAFAXINE HYDROCHLORIDE
  3. LIALDA [Suspect]
     Active Substance: MESALAMINE
     Indication: GASTRITIS
     Dosage: ?          QUANTITY:1 TABLET(S);?
     Route: 048
     Dates: start: 20170927, end: 20171015

REACTIONS (7)
  - Bone pain [None]
  - Pyrexia [None]
  - Chills [None]
  - Pericarditis [None]
  - Hyperhidrosis [None]
  - Product complaint [None]
  - Arthralgia [None]

NARRATIVE: CASE EVENT DATE: 20171010
